FAERS Safety Report 25592150 (Version 1)
Quarter: 2025Q3

REPORT INFORMATION
  Report Type: Spontaneous
  Country: US (occurrence: None)
  Receive Date: 20250722
  Receipt Date: 20250722
  Transmission Date: 20251020
  Serious: Yes (Hospitalization)
  Sender: FDA-CTU
  Company Number: None

PATIENT
  Sex: Male
  Weight: 82.35 kg

DRUGS (2)
  1. WINREVAIR [Suspect]
     Active Substance: SOTATERCEPT-CSRK
     Indication: Pulmonary arterial hypertension
     Route: 058
     Dates: start: 20250611
  2. REMODULIN [Suspect]
     Active Substance: TREPROSTINIL

REACTIONS (8)
  - Bedridden [None]
  - Gait inability [None]
  - Muscular weakness [None]
  - Pain in extremity [None]
  - Symptom recurrence [None]
  - Dyspnoea [None]
  - Prostate cancer [None]
  - Weight decreased [None]
